FAERS Safety Report 11317012 (Version 2)
Quarter: 2015Q3

REPORT INFORMATION
  Report Type: Spontaneous
  Country: SK (occurrence: SK)
  Receive Date: 20150728
  Receipt Date: 20150803
  Transmission Date: 20151125
  Serious: Yes (Hospitalization)
  Sender: FDA-Public Use
  Company Number: SK-ASTELLAS-2015US026506

PATIENT
  Age: 62 Year
  Sex: Male

DRUGS (1)
  1. PROTOPIC [Suspect]
     Active Substance: TACROLIMUS
     Indication: DERMATITIS ATOPIC
     Dosage: 0.1 %, TWICE DAILY
     Route: 061
     Dates: start: 201505, end: 20150715

REACTIONS (1)
  - Vasculitis necrotising [Recovered/Resolved]

NARRATIVE: CASE EVENT DATE: 20150715
